FAERS Safety Report 4613643-7 (Version None)
Quarter: 2005Q1

REPORT INFORMATION
  Report Type: 
  Country: None (occurrence: None)
  Receive Date: 20050315
  Receipt Date: 20030320
  Transmission Date: 20050727
  Serious: No
  Sender: FDA-Public Use
  Company Number: 5249

PATIENT
  Age: 21 Year
  Sex: Male

DRUGS (6)
  1. MIDAZOLAM [Suspect]
     Dosage: 2.5 MG
     Dates: start: 20020409, end: 20020409
  2. FENTANYL [Suspect]
     Dosage: 100 MICROGRAM
     Dates: start: 20020409, end: 20020409
  3. PROPOFOL [Suspect]
     Dosage: 200 MG
     Dates: start: 20020409, end: 20020409
  4. CEFAZOLIN SODIUM [Suspect]
     Dosage: 1 G
     Dates: start: 20020409, end: 20020411
  5. MORPHINE SULFATE [Suspect]
     Dosage: 8 MG
     Dates: start: 20020409, end: 20020411
  6. ONDANSETRON HYDROCHLORIDE [Suspect]
     Dosage: 4 MG
     Dates: start: 20020409, end: 20020409

REACTIONS (2)
  - HYPERTHERMIA MALIGNANT [None]
  - NEUROLEPTIC MALIGNANT SYNDROME [None]
